FAERS Safety Report 19142249 (Version 1)
Quarter: 2021Q2

REPORT INFORMATION
  Report Type: Spontaneous
  Country: US (occurrence: US)
  Receive Date: 20210415
  Receipt Date: 20210415
  Transmission Date: 20210717
  Serious: No
  Sender: FDA-Public Use
  Company Number: US-CHIASMA-2021CHI00062

PATIENT
  Age: 79 Year
  Sex: Male
  Weight: 106.58 kg

DRUGS (4)
  1. TYLENOL [Concomitant]
     Active Substance: ACETAMINOPHEN
  2. LASIX [Concomitant]
     Active Substance: FUROSEMIDE
  3. MYCAPSSA [Suspect]
     Active Substance: OCTREOTIDE
     Indication: BLOOD GROWTH HORMONE INCREASED
     Dosage: 40 MG PER DAY
     Route: 048
     Dates: start: 20210215
  4. LISINOPRIL. [Concomitant]
     Active Substance: LISINOPRIL

REACTIONS (3)
  - Arthritis [Not Recovered/Not Resolved]
  - Muscle spasms [Recovered/Resolved]
  - Pain [Not Recovered/Not Resolved]

NARRATIVE: CASE EVENT DATE: 202102
